FAERS Safety Report 5970890-X (Version None)
Quarter: 2008Q4

REPORT INFORMATION
  Report Type: 
  Country: None (occurrence: None)
  Receive Date: 20081128
  Receipt Date: 20081117
  Transmission Date: 20090506
  Serious: Yes (Other)
  Sender: FDA-Public Use
  Company Number: PHHY2008FR29273

PATIENT
  Age: 72 Year
  Sex: Female

DRUGS (9)
  1. ACLASTA [Suspect]
     Dosage: UNK
     Dates: start: 20081113
  2. FLECAINE [Concomitant]
  3. DI-ANTALVIC [Concomitant]
  4. NAPROXEN SODIUM [Concomitant]
  5. MOPRAL [Concomitant]
  6. CORVASAL [Concomitant]
  7. SKENAN [Concomitant]
  8. TANAKAN [Concomitant]
  9. SPIRIVA [Concomitant]

REACTIONS (8)
  - DYSPNOEA [None]
  - EYE PAIN [None]
  - FATIGUE [None]
  - HEADACHE [None]
  - INFLUENZA [None]
  - NAUSEA [None]
  - PAIN [None]
  - PYREXIA [None]
